FAERS Safety Report 4322511-X (Version None)
Quarter: 2004Q1

REPORT INFORMATION
  Report Type: 
  Country: None (occurrence: None)
  Receive Date: 20040323
  Receipt Date: 20040323
  Transmission Date: 20041129
  Serious: Yes (Other)
  Sender: FDA-Public Use
  Company Number: None

PATIENT
  Sex: Female
  Weight: 56.6996 kg

DRUGS (1)
  1. ZOLOFT [Suspect]
     Indication: DEPRESSION
     Dosage: 50 MG 1 ORAL
     Route: 048
     Dates: start: 20020801, end: 20040331

REACTIONS (13)
  - ABNORMAL BEHAVIOUR [None]
  - AGGRESSION [None]
  - ANGER [None]
  - CHILD ABUSE [None]
  - CHILD NEGLECT [None]
  - CONDITION AGGRAVATED [None]
  - CONFUSIONAL STATE [None]
  - DEPRESSION [None]
  - HOSTILITY [None]
  - MARITAL PROBLEM [None]
  - MOOD ALTERED [None]
  - SELF-MEDICATION [None]
  - TREATMENT NONCOMPLIANCE [None]
